FAERS Safety Report 18419758 (Version 1)
Quarter: 2020Q4

REPORT INFORMATION
  Report Type: Report from Study
  Country: US (occurrence: US)
  Receive Date: 20201023
  Receipt Date: 20201023
  Transmission Date: 20210114
  Serious: No
  Sender: FDA-Public Use
  Company Number: US-PFIZER INC-2020404543

PATIENT
  Age: 55 Year
  Sex: Female

DRUGS (3)
  1. METHOTREXATE. [Concomitant]
     Active Substance: METHOTREXATE
     Indication: RHEUMATOID ARTHRITIS
     Dosage: 6 MILLIGRAM, QWK
     Dates: start: 2019
  2. ENBREL [Suspect]
     Active Substance: ETANERCEPT
     Indication: RHEUMATOID ARTHRITIS
     Dosage: 50 MILLIGRAM, QWK
     Dates: start: 20200923
  3. ENBREL [Suspect]
     Active Substance: ETANERCEPT
     Dosage: 50 MILLIGRAM, QWK
     Dates: end: 202010

REACTIONS (13)
  - Flatulence [Unknown]
  - Device use error [Unknown]
  - Device difficult to use [Unknown]
  - Respiratory tract congestion [Unknown]
  - Dyspepsia [Unknown]
  - Constipation [Unknown]
  - Rhinorrhoea [Unknown]
  - Abdominal distension [Unknown]
  - Injection site pain [Unknown]
  - Injection site bruising [Unknown]
  - Insomnia [Unknown]
  - Oropharyngeal pain [Unknown]
  - Decreased appetite [Unknown]

NARRATIVE: CASE EVENT DATE: 20200923
